APPROVED DRUG PRODUCT: RADICAVA
Active Ingredient: EDARAVONE
Strength: 60MG/100ML (0.6MG/ML)
Dosage Form/Route: SOLUTION;INTRAVENOUS
Application: N209176 | Product #002 | TE Code: AP
Applicant: TANABE PHARMA CORP
Approved: Nov 15, 2018 | RLD: Yes | RS: No | Type: RX